FAERS Safety Report 21768437 (Version 8)
Quarter: 2023Q4

REPORT INFORMATION
  Report Type: Spontaneous
  Country: US (occurrence: US)
  Receive Date: 20221222
  Receipt Date: 20231215
  Transmission Date: 20240109
  Serious: Yes (Other)
  Sender: FDA-Public Use
  Company Number: US-PFIZER INC-PV202200127512

PATIENT
  Age: 68 Year
  Sex: Female

DRUGS (2)
  1. IBRANCE [Suspect]
     Active Substance: PALBOCICLIB
     Indication: Breast cancer female
     Dosage: 125 MG (DAILY FOR 21 DAYS)
     Route: 048
     Dates: start: 20220909, end: 20230221
  2. IBRANCE [Suspect]
     Active Substance: PALBOCICLIB
     Dosage: 125 MG, CYCLIC (TAKE 1 PILL DAILY FOR 21 D OFF 7 DAY OF 28 DAY CYCLE)
     Route: 048

REACTIONS (16)
  - Cerebral haemorrhage [Unknown]
  - Dental operation [Unknown]
  - Brain operation [Unknown]
  - Aneurysm [Unknown]
  - Breast operation [Unknown]
  - Breast conserving surgery [Unknown]
  - Arthralgia [Unknown]
  - Pain in extremity [Unknown]
  - Psychiatric symptom [Unknown]
  - Fatigue [Unknown]
  - Bone pain [Unknown]
  - Diarrhoea [Unknown]
  - Abdominal pain upper [Unknown]
  - Pain [Unknown]
  - White blood cell count abnormal [Unknown]
  - Weight increased [Unknown]

NARRATIVE: CASE EVENT DATE: 20220101
